FAERS Safety Report 9236282 (Version 1)
Quarter: 2013Q2

REPORT INFORMATION
  Report Type: Spontaneous
  Country: CA (occurrence: CA)
  Receive Date: 20130417
  Receipt Date: 20130417
  Transmission Date: 20140414
  Serious: Yes (Other)
  Sender: FDA-Public Use
  Company Number: CA-AMGEN-CANSP2013001446

PATIENT
  Age: 71 Year
  Sex: Female

DRUGS (5)
  1. PROLIA [Suspect]
     Indication: OSTEOPOROSIS
     Dosage: 60 MG, UNK
     Route: 058
     Dates: start: 20121011
  2. PARIET [Concomitant]
     Dosage: 200 MG, UNK
  3. L THYROXINE [Concomitant]
     Dosage: 50 MG, UNK
  4. CRESTOR [Concomitant]
     Dosage: 5 MG, UNK
  5. TRAZODONE [Concomitant]
     Dosage: 50 MG, UNK

REACTIONS (5)
  - Palpitations [Recovered/Resolved]
  - Pain [Recovered/Resolved]
  - Headache [Recovered/Resolved]
  - Abdominal discomfort [Recovering/Resolving]
  - Asthenia [Recovering/Resolving]
